FAERS Safety Report 9266096 (Version 1)
Quarter: 2013Q2

REPORT INFORMATION
  Report Type: Spontaneous
  Country: CH (occurrence: CH)
  Receive Date: 20130501
  Receipt Date: 20130501
  Transmission Date: 20140414
  Serious: Yes (Other)
  Sender: FDA-Public Use
  Company Number: CH-BRISTOL-MYERS SQUIBB COMPANY-18772715

PATIENT
  Sex: 0

DRUGS (1)
  1. ABILIFY TABS 10 MG [Suspect]
     Dosage: DOSE REDUCED TO 5 MG

REACTIONS (2)
  - Psychotic disorder [Unknown]
  - Malaise [Unknown]
